FAERS Safety Report 6959263-0 (Version None)
Quarter: 2010Q3

REPORT INFORMATION
  Report Type: 
  Country: None (occurrence: None)
  Receive Date: 20100831
  Receipt Date: 20100819
  Transmission Date: 20110219
  Serious: Yes (Other)
  Sender: FDA-Public Use
  Company Number: US-PFIZER INC-2010104930

PATIENT
  Sex: Male
  Weight: 172.34 kg

DRUGS (4)
  1. LYRICA [Suspect]
     Indication: PAIN
     Dosage: 75 MG, DAILY
     Route: 048
     Dates: start: 20070101
  2. LORTAB [Concomitant]
     Dosage: 10/500
     Route: 048
  3. NEXIUM [Concomitant]
     Dosage: 25 MG, 1X/DAY
     Route: 048
  4. FLEXERIL [Concomitant]
     Dosage: 5 MG, 1X/DAY
     Route: 048

REACTIONS (1)
  - DYSPNOEA [None]
